FAERS Safety Report 7369714-8 (Version None)
Quarter: 2011Q1

REPORT INFORMATION
  Report Type: 
  Country: None (occurrence: None)
  Receive Date: 20110323
  Receipt Date: 20110310
  Transmission Date: 20110831
  Serious: Yes (Hospitalization)
  Sender: FDA-Public Use
  Company Number: PHHY2011GB21356

PATIENT
  Sex: Female
  Weight: 4.34 kg

DRUGS (3)
  1. BETAMETHASONE [Suspect]
     Dosage: MATERNAL DOSE: TWO DOSES OF 12MG
     Route: 064
  2. METFORMIN [Suspect]
     Dosage: MATERNAL DOSE: 500 MG TDS
     Route: 064
  3. ISOPHANE INSULIN [Suspect]
     Dosage: MATERNAL DOSE: 8 UNIT/DAY AT NIGHT
     Route: 064

REACTIONS (3)
  - HYPOGLYCAEMIA NEONATAL [None]
  - FOETAL MACROSOMIA [None]
  - DRUG EXPOSURE DURING PREGNANCY [None]
